FAERS Safety Report 6429815-5 (Version None)
Quarter: 2009Q4

REPORT INFORMATION
  Report Type: 
  Country: None (occurrence: None)
  Receive Date: 20091104
  Receipt Date: 20091104
  Transmission Date: 20100525
  Serious: Yes (Life-Threatening)
  Sender: FDA-Public Use
  Company Number: None

PATIENT
  Sex: Male
  Weight: 65 kg

DRUGS (2)
  1. COLYTE WITH FLAVOR PACKS [Suspect]
     Indication: COLON CANCER
     Dosage: 4 LITERS 240 ML Q 10 MINUTES ORAL
     Route: 048
     Dates: start: 20091025
  2. COLYTE WITH FLAVOR PACKS [Suspect]
     Indication: INJURY
     Dosage: 4 LITERS 240 ML Q 10 MINUTES ORAL
     Route: 048
     Dates: start: 20091025

REACTIONS (7)
  - ABDOMINAL PAIN [None]
  - CYANOSIS [None]
  - DYSPNOEA [None]
  - HYPERHIDROSIS [None]
  - PAIN [None]
  - PALPITATIONS [None]
  - TACHYPNOEA [None]
